FAERS Safety Report 4621132-9 (Version None)
Quarter: 2005Q1

REPORT INFORMATION
  Report Type: 
  Country: None (occurrence: None)
  Receive Date: 20050328
  Receipt Date: 20050311
  Transmission Date: 20050727
  Serious: No
  Sender: FDA-Public Use
  Company Number: 2005GB00522

PATIENT
  Sex: Female

DRUGS (3)
  1. MARCAINE [Suspect]
     Indication: SPINAL DISORDER
  2. DEPO-MEDRONE [Concomitant]
  3. FENTANYL [Concomitant]

REACTIONS (4)
  - BURNING SENSATION [None]
  - CHEST DISCOMFORT [None]
  - RETINAL HAEMORRHAGE [None]
  - SENSATION OF PRESSURE [None]
